FAERS Safety Report 18514772 (Version 1)
Quarter: 2020Q4

REPORT INFORMATION
  Report Type: Spontaneous
  Country: FR (occurrence: FR)
  Receive Date: 20201118
  Receipt Date: 20201118
  Transmission Date: 20210114
  Serious: Yes (Other)
  Sender: FDA-Public Use
  Company Number: FR-CELLTRION INC.-2020FR031618

PATIENT

DRUGS (2)
  1. INFLIXIMAB (UNKNOWN) [Suspect]
     Active Substance: INFLIXIMAB
     Indication: CHRONIC GRANULOMATOUS DISEASE
     Dosage: 5 OR 10 MG/KG/INFUSION, USUALLY AT 0, 2, AND 6 WEEKS, THEN EVERY 4 TO 8 WEEKS
  2. 5-ASA [Concomitant]
     Active Substance: MESALAMINE
     Indication: CHRONIC GRANULOMATOUS DISEASE
     Dosage: UNK

REACTIONS (4)
  - Systemic candida [Unknown]
  - Drug effective for unapproved indication [Unknown]
  - Cat scratch disease [Unknown]
  - Off label use [Unknown]
